FAERS Safety Report 4264781-2 (Version None)
Quarter: 2004Q1

REPORT INFORMATION
  Report Type: 
  Country: None (occurrence: None)
  Receive Date: 20040105
  Receipt Date: 20031218
  Transmission Date: 20041129
  Serious: Yes (Death)
  Sender: FDA-Public Use
  Company Number: STA-AE-03-MTX-194

PATIENT
  Age: 74 Year
  Sex: Female

DRUGS (9)
  1. METHOTREXATE [Suspect]
     Indication: RHEUMATOID ARTHRITIS
     Dosage: 5 MG 1X PER 1 WK, ORAL
     Route: 048
     Dates: start: 20011128, end: 20020506
  2. ENBREL [Suspect]
     Indication: RHEUMATOID ARTHRITIS
     Dosage: 25 MG 2 X PER 1 WK, SC
     Route: 058
     Dates: start: 20021030
  3. FOLIC ACID [Concomitant]
  4. PREDNISONE [Concomitant]
  5. THYROID TAB [Concomitant]
  6. EVISTA [Concomitant]
  7. PREMARIN [Concomitant]
  8. LIPITOR [Concomitant]
  9. PREVACID [Concomitant]

REACTIONS (1)
  - CARDIO-RESPIRATORY ARREST [None]
